FAERS Safety Report 8143707-5 (Version None)
Quarter: 2012Q1

REPORT INFORMATION
  Report Type: 
  Country: None (occurrence: None)
  Receive Date: 20120217
  Receipt Date: 20120210
  Transmission Date: 20120608
  Serious: Yes (Hospitalization)
  Sender: FDA-Public Use
  Company Number: BR-ASTELLAS-2012US001770

PATIENT
  Sex: Male
  Weight: 60 kg

DRUGS (9)
  1. IMOSEC [Concomitant]
     Indication: DIARRHOEA
     Dosage: UNK
     Route: 065
     Dates: start: 20100919
  2. ENSURE [Concomitant]
     Indication: WEIGHT DECREASED
     Dosage: UNK
     Route: 065
     Dates: start: 20110101
  3. ERLOTINIB HYDROCHLORIDE [Suspect]
     Indication: HEPATIC NEOPLASM MALIGNANT
     Dosage: UNK
     Route: 048
  4. ENALAPRIL MALEATE [Concomitant]
     Indication: HYPERTENSION
     Dosage: UNK
     Route: 065
     Dates: start: 20100824
  5. CLINDAGEL [Concomitant]
     Indication: RASH
     Dosage: UNK
     Route: 065
     Dates: start: 20100831
  6. NUTRAPLUS [Concomitant]
     Indication: RASH
     Dosage: UNK
     Route: 065
     Dates: start: 20110614
  7. SORAFENIB [Suspect]
     Indication: HEPATIC NEOPLASM MALIGNANT
     Dosage: UNK
     Route: 065
  8. PROPRANOLOL [Concomitant]
     Indication: PROPHYLAXIS
     Dosage: UNK
     Route: 065
     Dates: start: 20101019
  9. CODEINE SULFATE [Concomitant]
     Indication: DIARRHOEA
     Dosage: UNK
     Route: 065
     Dates: start: 20110403

REACTIONS (3)
  - LOSS OF CONSCIOUSNESS [None]
  - HAEMATOCHEZIA [None]
  - OFF LABEL USE [None]
